FAERS Safety Report 5197465-7 (Version None)
Quarter: 2006Q4

REPORT INFORMATION
  Report Type: 
  Country: None (occurrence: None)
  Receive Date: 20060927
  Receipt Date: 20060620
  Transmission Date: 20070319
  Serious: No
  Sender: FDA-Public Use
  Company Number: US-CVT-061476

PATIENT
  Sex: Female

DRUGS (4)
  1. RANEXA [Suspect]
     Indication: ANGINA PECTORIS
     Dosage: 500 MG, BID, ORAL
     Route: 048
     Dates: start: 20060101, end: 20060101
  2. RANEXA [Suspect]
     Indication: ANGINA PECTORIS
     Dosage: 500 MG, BID, ORAL
     Route: 048
     Dates: start: 20060618
  3. BETA BLOCKING AGENTS() [Suspect]
     Dosage: UNK, UNK, UNK
  4. TOPROL-XL [Concomitant]

REACTIONS (2)
  - REBOUND EFFECT [None]
  - SINUS TACHYCARDIA [None]
